FAERS Safety Report 7511368-1 (Version None)
Quarter: 2011Q2

REPORT INFORMATION
  Report Type: 
  Country: None (occurrence: None)
  Receive Date: 20110531
  Receipt Date: 20100915
  Transmission Date: 20111010
  Serious: Yes (Hospitalization, Other)
  Sender: FDA-Public Use
  Company Number: US-BAYER-200912351NA

PATIENT
  Age: 28 Year
  Sex: Female
  Weight: 68.027 kg

DRUGS (14)
  1. YASMIN [Suspect]
  2. MULTI-VITAMINS [Concomitant]
     Route: 048
  3. YAZ [Suspect]
  4. YAZ [Suspect]
     Indication: CONTRACEPTION
     Dosage: UNK
     Dates: start: 20040101, end: 20040101
  5. FLUOXETINE [Concomitant]
  6. DROSPIRENONE AND ETHINYL ESTRADIOL [Suspect]
     Indication: PREMENSTRUAL SYNDROME
     Dosage: 1 DF (DAILY DOSE), QD, ORAL
     Route: 048
     Dates: start: 20090124, end: 20090127
  7. YASMIN [Suspect]
     Indication: PREMENSTRUAL SYNDROME
  8. PROZAC [Concomitant]
  9. DROSPIRENONE AND ETHINYL ESTRADIOL [Suspect]
     Indication: CONTRACEPTION
     Dosage: 1 DF (DAILY DOSE), QD, ORAL
     Route: 048
     Dates: start: 20080801, end: 20081101
  10. DROSPIRENONE AND ETHINYL ESTRADIOL [Suspect]
  11. YASMIN [Suspect]
     Indication: CONTRACEPTION
     Dosage: UNK
     Dates: start: 20020101, end: 20090101
  12. YAZ [Suspect]
     Indication: PREMENSTRUAL SYNDROME
  13. VITAMIN B12 NOS [Concomitant]
     Route: 048
  14. LOESTRIN 1.5/30 [Concomitant]

REACTIONS (8)
  - CHOLECYSTITIS CHRONIC [None]
  - BILIARY COLIC [None]
  - PREMENSTRUAL SYNDROME [None]
  - GALLBLADDER DISORDER [None]
  - CRYING [None]
  - DEPRESSION [None]
  - ANXIETY [None]
  - IRRITABILITY [None]
